FAERS Safety Report 13416243 (Version 1)
Quarter: 2017Q2

REPORT INFORMATION
  Report Type: Spontaneous
  Country: FR (occurrence: FR)
  Receive Date: 20170406
  Receipt Date: 20170406
  Transmission Date: 20170830
  Serious: Yes (Hospitalization)
  Sender: FDA-Public Use
  Company Number: FR-JNJFOC-20170334016

PATIENT
  Age: 64 Year
  Sex: Female

DRUGS (4)
  1. RISPERDAL [Suspect]
     Active Substance: RISPERIDONE
     Indication: AFFECTIVE DISORDER
     Dosage: LONG TERM TREATMENT
     Route: 048
     Dates: end: 20170307
  2. SERESTA [Concomitant]
     Active Substance: OXAZEPAM
     Dosage: 25 MG IN THE MORNING AND 50 MG IN THE EVENING
     Route: 065
  3. AOTAL [Concomitant]
     Active Substance: ACAMPROSATE CALCIUM
     Dosage: 666 MG IN THE MORNING AND IN THE EVENING
     Route: 065
  4. PROPRANOLOL [Concomitant]
     Active Substance: PROPRANOLOL HYDROCHLORIDE
     Dosage: 20 MG IN THE MORNING AND IN THE EVENING
     Route: 065

REACTIONS (9)
  - Extrapyramidal disorder [Recovered/Resolved]
  - Altered state of consciousness [Unknown]
  - Urinary tract infection [Unknown]
  - Off label use [Unknown]
  - Muscle rigidity [Recovered/Resolved]
  - Disturbance in attention [Unknown]
  - Product use in unapproved indication [Unknown]
  - Pancytopenia [Recovered/Resolved]
  - Dehydration [Unknown]

NARRATIVE: CASE EVENT DATE: 20170307
